FAERS Safety Report 23847088 (Version 1)
Quarter: 2024Q2

REPORT INFORMATION
  Report Type: Spontaneous
  Country: CN (occurrence: CN)
  Receive Date: 20240513
  Receipt Date: 20240513
  Transmission Date: 20240716
  Serious: Yes (Life-Threatening)
  Sender: FDA-Public Use
  Company Number: CN-HALEON-2173095

PATIENT
  Age: 21 Year
  Sex: Male
  Weight: 50 kg

DRUGS (1)
  1. ACETAMINOPHEN\CAFFEINE [Suspect]
     Active Substance: ACETAMINOPHEN\CAFFEINE
     Indication: Self-medication
     Dosage: 40 TABLETS
     Route: 048
     Dates: start: 20240504, end: 20240505

REACTIONS (5)
  - Dizziness [Recovering/Resolving]
  - Abdominal discomfort [Unknown]
  - Palpitations [Recovering/Resolving]
  - Overdose [Unknown]
  - Depression [Unknown]

NARRATIVE: CASE EVENT DATE: 20240504
